FAERS Safety Report 15677090 (Version 1)
Quarter: 2018Q4

REPORT INFORMATION
  Report Type: Spontaneous
  Country: US (occurrence: US)
  Receive Date: 20181130
  Receipt Date: 20181130
  Transmission Date: 20190205
  Serious: No
  Sender: FDA-Public Use
  Company Number: US-PFIZER INC-2018491359

PATIENT
  Age: 21 Year
  Sex: Male

DRUGS (1)
  1. XELJANZ [Suspect]
     Active Substance: TOFACITINIB CITRATE
     Dosage: 10 MG, UNK (X60)
     Dates: start: 20181109

REACTIONS (3)
  - Abdominal pain upper [Unknown]
  - Frequent bowel movements [Unknown]
  - Nausea [Unknown]

NARRATIVE: CASE EVENT DATE: 20181121
